FAERS Safety Report 4786829-9 (Version None)
Quarter: 2005Q3

REPORT INFORMATION
  Report Type: 
  Country: None (occurrence: None)
  Receive Date: 20050930
  Receipt Date: 20050925
  Transmission Date: 20060218
  Serious: Yes (Other)
  Sender: FDA-Public Use
  Company Number: B0394946A

PATIENT
  Age: 55 Year
  Sex: Male

DRUGS (9)
  1. AVANDIA [Suspect]
     Indication: DIABETES MELLITUS
     Dosage: SEE IMAGE
  2. SHORT-ACTING INSULIN [Concomitant]
  3. HUMAN INSULIN [Concomitant]
  4. ATORVASTATIN CALCIUM [Concomitant]
  5. CALCIUM SALT [Concomitant]
  6. AMLODIPINE BESYLATE [Concomitant]
  7. QUINAPRIL HCL [Concomitant]
  8. HYDROCHLOROTHIAZIDE [Concomitant]
  9. SERTRALINE HYDROCHLORIDE [Concomitant]

REACTIONS (4)
  - BLINDNESS [None]
  - MACULAR OEDEMA [None]
  - NEPHROPATHY [None]
  - OEDEMA PERIPHERAL [None]
